APPROVED DRUG PRODUCT: RAMIPRIL
Active Ingredient: RAMIPRIL
Strength: 2.5MG
Dosage Form/Route: CAPSULE;ORAL
Application: A077514 | Product #002
Applicant: CHARTWELL RX SCIENCES LLC
Approved: Jun 18, 2008 | RLD: No | RS: No | Type: DISCN